FAERS Safety Report 8299900-4 (Version None)
Quarter: 2012Q2

REPORT INFORMATION
  Report Type: 
  Country: None (occurrence: None)
  Receive Date: 20120419
  Receipt Date: 20120411
  Transmission Date: 20120825
  Serious: Yes (Other)
  Sender: FDA-Public Use
  Company Number: US-BRISTOL-MYERS SQUIBB COMPANY-16514523

PATIENT
  Age: 54 Year
  Sex: Male
  Weight: 86 kg

DRUGS (11)
  1. MEVACOR [Suspect]
     Indication: BLOOD TRIGLYCERIDES INCREASED
  2. MEVACOR [Suspect]
     Indication: BLOOD CHOLESTEROL INCREASED
  3. PRAVACHOL [Suspect]
     Indication: BLOOD CHOLESTEROL INCREASED
  4. PRAVACHOL [Suspect]
     Indication: BLOOD TRIGLYCERIDES INCREASED
  5. NIACIN [Suspect]
  6. ZOCOR [Suspect]
     Indication: LOW DENSITY LIPOPROTEIN INCREASED
  7. ZOCOR [Suspect]
     Indication: BLOOD TRIGLYCERIDES INCREASED
  8. PRAVACHOL [Suspect]
     Indication: LOW DENSITY LIPOPROTEIN INCREASED
  9. MEVACOR [Suspect]
     Indication: LOW DENSITY LIPOPROTEIN INCREASED
  10. XANAX [Concomitant]
     Indication: SLEEP DISORDER
  11. ZOCOR [Suspect]
     Indication: BLOOD CHOLESTEROL INCREASED

REACTIONS (3)
  - HOT FLUSH [None]
  - DRUG INEFFECTIVE [None]
  - BURNING SENSATION [None]
